FAERS Safety Report 8613337-7 (Version None)
Quarter: 2012Q3

REPORT INFORMATION
  Report Type: 
  Country: None (occurrence: None)
  Receive Date: 20120822
  Receipt Date: 20120806
  Transmission Date: 20120928
  Serious: Yes (Hospitalization, Other)
  Sender: FDA-Public Use
  Company Number: US-009507513-1202USA04361

PATIENT

DRUGS (2)
  1. ALENDRONATE SODIUM [Suspect]
     Indication: OSTEOPOROSIS
     Dosage: 70 MG, QW
     Dates: start: 20080301, end: 20110222
  2. FOSAMAX [Suspect]
     Indication: OSTEOPOROSIS
     Dosage: 70 MG, QW
     Route: 048
     Dates: start: 20010101

REACTIONS (7)
  - FOOT FRACTURE [None]
  - VITAMIN D DEFICIENCY [None]
  - BONE TRIMMING [None]
  - FEMUR FRACTURE [None]
  - IMPAIRED HEALING [None]
  - TOOTH EXTRACTION [None]
  - BLOOD CHOLESTEROL INCREASED [None]
